FAERS Safety Report 6045724-8 (Version None)
Quarter: 2009Q1

REPORT INFORMATION
  Report Type: 
  Country: None (occurrence: None)
  Receive Date: 20090121
  Receipt Date: 20090113
  Transmission Date: 20090719
  Serious: Yes (Other)
  Sender: FDA-Public Use
  Company Number: AU-ELI_LILLY_AND_COMPANY-AU200901001676

PATIENT
  Sex: Female

DRUGS (1)
  1. HUMULIN R [Suspect]
     Indication: TYPE 1 DIABETES MELLITUS

REACTIONS (2)
  - HYPOAESTHESIA [None]
  - VISUAL ACUITY REDUCED [None]
